FAERS Safety Report 24655156 (Version 2)
Quarter: 2024Q4

REPORT INFORMATION
  Report Type: Spontaneous
  Country: IQ (occurrence: IQ)
  Receive Date: 20241123
  Receipt Date: 20241206
  Transmission Date: 20250115
  Serious: Yes (Hospitalization)
  Sender: AMGEN
  Company Number: IQ-AMGEN-IRQSP2024227549

PATIENT
  Age: 35 Year
  Sex: Male

DRUGS (1)
  1. BLINCYTO [Suspect]
     Active Substance: BLINATUMOMAB
     Indication: Acute lymphocytic leukaemia
     Dosage: UNK, 28 DAYS
     Route: 040

REACTIONS (1)
  - Transverse sinus thrombosis [Unknown]
